FAERS Safety Report 5213600-6 (Version None)
Quarter: 2007Q1

REPORT INFORMATION
  Report Type: 
  Country: None (occurrence: None)
  Receive Date: 20070119
  Receipt Date: 20070116
  Transmission Date: 20070707
  Serious: Yes (Hospitalization)
  Sender: FDA-Public Use
  Company Number: US-ROXANE LABORATORIES, INC-2007-BP-00692RO

PATIENT
  Age: 52 Year
  Sex: Female

DRUGS (4)
  1. CYCLOPHOSPHAMIDE [Suspect]
     Indication: CHEMOTHERAPY
     Dosage: 600 MG/M2 Q 2 WEEKS
  2. DEXAMETHASONE [Suspect]
     Indication: PROPHYLAXIS OF NAUSEA AND VOMITING
     Dosage: 4 MG BID X 3 DAYS Q 2 WEEKS
  3. DOXORUBICIN HCL [Suspect]
     Indication: CHEMOTHERAPY
     Dosage: 60 MG/M2 Q 2 WEEKS
  4. PEGFILGRASTIM [Suspect]
     Indication: CHEMOTHERAPY CYTOKINE PROPHYLAXIS

REACTIONS (6)
  - CHEST X-RAY ABNORMAL [None]
  - COUGH [None]
  - DYSPNOEA [None]
  - NEUTROPENIA [None]
  - PNEUMOCYSTIS JIROVECI PNEUMONIA [None]
  - PYREXIA [None]
